FAERS Safety Report 6625679-5 (Version None)
Quarter: 2010Q1

REPORT INFORMATION
  Report Type: 
  Country: None (occurrence: None)
  Receive Date: 20100310
  Receipt Date: 20100304
  Transmission Date: 20100710
  Serious: Yes (Other)
  Sender: FDA-Public Use
  Company Number: US-BRISTOL-MYERS SQUIBB COMPANY-15005531

PATIENT
  Age: 56 Year
  Sex: Male

DRUGS (2)
  1. ERBITUX [Suspect]
     Indication: RECTAL CANCER
     Dosage: INTERRUPTED ON 19JUN2009;OVER 60-120MIN WEEKLY
     Route: 042
     Dates: start: 20090417
  2. TARCEVA [Suspect]
     Indication: RECTAL CANCER
     Dosage: DAILY ON DAY 8-21 OF CYCLE 1 THEN ON DAYS 1-21 SUBSEQUENT CYCLES
     Route: 048
     Dates: end: 20090702

REACTIONS (1)
  - ECZEMA ASTEATOTIC [None]
